FAERS Safety Report 4695234-5 (Version None)
Quarter: 2005Q2

REPORT INFORMATION
  Report Type: 
  Country: None (occurrence: None)
  Receive Date: 20050614
  Receipt Date: 20050427
  Transmission Date: 20051028
  Serious: Yes (Other)
  Sender: FDA-Public Use
  Company Number: US_0504115312

PATIENT
  Age: 56 Year
  Sex: Male
  Weight: 80 kg

DRUGS (2)
  1. CIALIS [Suspect]
     Dates: start: 20050301, end: 20050101
  2. CROMOLYN SODIUM [Concomitant]

REACTIONS (3)
  - EYE HAEMORRHAGE [None]
  - PUPILLARY DISORDER [None]
  - VISUAL FIELD DEFECT [None]
